FAERS Safety Report 26168296 (Version 1)
Quarter: 2025Q4

REPORT INFORMATION
  Report Type: Spontaneous
  Country: CN (occurrence: CN)
  Receive Date: 20251217
  Receipt Date: 20251217
  Transmission Date: 20260117
  Serious: Yes (Other)
  Sender: RANBAXY
  Company Number: CN-SUN PHARMACEUTICAL INDUSTRIES LTD-2025R1-541502

PATIENT
  Age: 9 Year
  Sex: Male

DRUGS (1)
  1. IMATINIB [Suspect]
     Active Substance: IMATINIB
     Indication: B-cell type acute leukaemia
     Dosage: 320 MILLIGRAM/SQ. METER, DAILY
     Route: 065

REACTIONS (5)
  - Hypoalbuminaemia [Unknown]
  - Sepsis [Unknown]
  - Pneumonia [Unknown]
  - Venous thrombosis [Unknown]
  - Drug resistance [Unknown]
